FAERS Safety Report 10396997 (Version 1)
Quarter: 2014Q3

REPORT INFORMATION
  Report Type: Spontaneous
  Country: US (occurrence: None)
  Receive Date: 20140819
  Receipt Date: 20140819
  Transmission Date: 20150326
  Serious: Yes (Other)
  Sender: FDA-Public Use
  Company Number: None

PATIENT
  Age: 56 Year
  Sex: Female
  Weight: 70.31 kg

DRUGS (1)
  1. BUPROPION XL [Suspect]
     Active Substance: BUPROPION
     Indication: ANXIETY
     Dosage: 1  ONCE DAILY TAKEN BY MOUTH
     Route: 048
     Dates: start: 201401, end: 201408

REACTIONS (7)
  - Activities of daily living impaired [None]
  - Drug ineffective [None]
  - Quality of life decreased [None]
  - Product formulation issue [None]
  - Product substitution issue [None]
  - Insomnia [None]
  - Product quality issue [None]

NARRATIVE: CASE EVENT DATE: 20140115
